FAERS Safety Report 9856717 (Version 2)
Quarter: 2014Q2

REPORT INFORMATION
  Report Type: Spontaneous
  Country: JP (occurrence: JP)
  Receive Date: 20140130
  Receipt Date: 20140409
  Transmission Date: 20141212
  Serious: Yes (Hospitalization)
  Sender: FDA-Public Use
  Company Number: JP-GLAXOSMITHKLINE-B0960653A

PATIENT
  Age: 43 Year
  Sex: Female

DRUGS (5)
  1. LAMICTAL [Suspect]
     Indication: BIPOLAR DISORDER
     Dosage: 25MG PER DAY
     Route: 048
     Dates: start: 20131025, end: 20131107
  2. LAMICTAL [Suspect]
     Indication: BIPOLAR DISORDER
     Dosage: 100MG PER DAY
     Route: 048
     Dates: start: 20131108, end: 20131121
  3. LAMICTAL [Suspect]
     Indication: BIPOLAR DISORDER
     Dosage: 200MG PER DAY
     Route: 048
     Dates: start: 20131122, end: 20131123
  4. CARBAMAZEPINE [Concomitant]
     Indication: BIPOLAR DISORDER
     Dosage: 400MG PER DAY
     Route: 048
     Dates: start: 20131115, end: 20131123
  5. ZOLPIDEM TARTRATE [Concomitant]
     Route: 048

REACTIONS (16)
  - Stevens-Johnson syndrome [Recovered/Resolved]
  - Pneumonia [Unknown]
  - Drug reaction with eosinophilia and systemic symptoms [Unknown]
  - Liver disorder [Recovered/Resolved]
  - Ocular hyperaemia [Unknown]
  - Erythema of eyelid [Unknown]
  - Eyelid erosion [Unknown]
  - Rash macular [Unknown]
  - Generalised erythema [Unknown]
  - Pyrexia [Unknown]
  - Conjunctival disorder [Unknown]
  - Hyperthermia [Unknown]
  - Hyperkeratosis [Unknown]
  - Eczema [Unknown]
  - Perivascular dermatitis [Unknown]
  - Decreased appetite [Unknown]
